FAERS Safety Report 23444011 (Version 1)
Quarter: 2024Q1

REPORT INFORMATION
  Report Type: Other
  Country: RU (occurrence: None)
  Receive Date: 20240125
  Receipt Date: 20240125
  Transmission Date: 20240410
  Serious: Yes (Other)
  Sender: FDA-Public Use
  Company Number: RU-ROCHE-3498440

PATIENT
  Age: 68 Year
  Sex: Female

DRUGS (16)
  1. TRASTUZUMAB [Suspect]
     Active Substance: TRASTUZUMAB
     Indication: HER2 positive breast cancer
     Route: 065
  2. TRASTUZUMAB [Suspect]
     Active Substance: TRASTUZUMAB
     Route: 065
  3. TRASTUZUMAB [Suspect]
     Active Substance: TRASTUZUMAB
     Dosage: 6 CYCLES OF DOCETAXEL/TRASTUZUMAB/PERTUZUMAB, FOLLOWED BY 3 CYCLES OF TRASTUZUMAB/PERTUZUMAB AT STAN
     Route: 065
  4. PERTUZUMAB [Suspect]
     Active Substance: PERTUZUMAB
     Indication: HER2 positive breast cancer
     Dosage: 6 CYCLES OF DOCETAXEL/TRASTUZUMAB/PERTUZUMAB, FOLLOWED BY 3 CYCLES OF TRASTUZUMAB/PERTUZUMAB AT STAN
     Route: 065
  5. CARBOPLATIN [Suspect]
     Active Substance: CARBOPLATIN
     Indication: HER2 positive breast cancer
     Dosage: AUC 5
     Route: 065
  6. DOCETAXEL [Suspect]
     Active Substance: DOCETAXEL\DOCETAXEL ANHYDROUS
     Indication: HER2 positive breast cancer
     Dosage: 1 CYCLE OF DOCETAXEL
     Route: 065
  7. CYCLOPHOSPHAMIDE [Suspect]
     Active Substance: CYCLOPHOSPHAMIDE
     Indication: HER2 positive breast cancer
     Route: 065
  8. DOXORUBICIN [Suspect]
     Active Substance: DOXORUBICIN
     Indication: HER2 positive breast cancer
     Route: 065
  9. PACLITAXEL [Suspect]
     Active Substance: PACLITAXEL
     Indication: HER2 positive breast cancer
     Route: 065
  10. ZOLEDRONIC ACID [Suspect]
     Active Substance: ZOLEDRONIC ACID
     Indication: HER2 positive breast cancer
     Route: 065
  11. CAPECITABINE [Suspect]
     Active Substance: CAPECITABINE
     Indication: HER2 positive breast cancer
     Dosage: THROUGH DAYS 1-14 OF A THREE-WEEKLY CYCLE
     Route: 065
  12. ANASTROZOLE [Suspect]
     Active Substance: ANASTROZOLE
     Indication: HER2 positive breast cancer
     Route: 065
  13. LAPATINIB [Suspect]
     Active Substance: LAPATINIB
     Indication: HER2 positive breast cancer
     Route: 065
  14. ADO-TRASTUZUMAB EMTANSINE [Concomitant]
     Active Substance: ADO-TRASTUZUMAB EMTANSINE
     Indication: HER2 positive breast cancer
     Route: 065
     Dates: start: 202207
  15. BEVACIZUMAB [Concomitant]
     Active Substance: BEVACIZUMAB
     Indication: HER2 positive breast cancer
     Dosage: 400 MG (5 MG/KG)
     Route: 065
     Dates: start: 20220916
  16. BEVACIZUMAB [Concomitant]
     Active Substance: BEVACIZUMAB
     Dosage: [800 MG (10 MG/KG)]
     Route: 065

REACTIONS (4)
  - Disease progression [Unknown]
  - Metastases to central nervous system [Unknown]
  - Metastases to thorax [Unknown]
  - Metastases to bone [Unknown]
